FAERS Safety Report 7520094-4 (Version None)
Quarter: 2011Q2

REPORT INFORMATION
  Report Type: 
  Country: None (occurrence: None)
  Receive Date: 20110602
  Receipt Date: 20110525
  Transmission Date: 20111010
  Serious: Yes (Other)
  Sender: FDA-Public Use
  Company Number: BE-ROCHE-779451

PATIENT
  Sex: Male

DRUGS (5)
  1. VITAMIN B6 [Concomitant]
     Route: 048
     Dates: start: 20110301
  2. PEGINTERFERON ALFA-2A [Suspect]
     Route: 058
     Dates: start: 20100512, end: 20110506
  3. PAROXETINE HCL [Concomitant]
     Indication: DEPRESSION
     Route: 048
     Dates: start: 20110413
  4. GOLIMUMAB [Suspect]
     Route: 058
     Dates: start: 20110405, end: 20110518
  5. NICOTIBINE [Concomitant]
     Route: 048
     Dates: start: 20110301, end: 20110518

REACTIONS (2)
  - ALCOHOLISM [None]
  - THROMBOCYTOPENIA [None]
